FAERS Safety Report 7007686-6 (Version None)
Quarter: 2010Q3

REPORT INFORMATION
  Report Type: 
  Country: None (occurrence: None)
  Receive Date: 20100922
  Receipt Date: 20100913
  Transmission Date: 20110219
  Serious: Yes (Other)
  Sender: FDA-Public Use
  Company Number: US-ASTRAZENECA-2010SE37417

PATIENT
  Age: 50 Year
  Sex: Female
  Weight: 68 kg

DRUGS (3)
  1. SYMBICORT [Suspect]
     Indication: DYSPNOEA
     Dosage: 160/4.5 UG TWO PUFFS
     Route: 055
     Dates: start: 20100101, end: 20100801
  2. LEXAPRO [Concomitant]
     Indication: ANXIETY
     Route: 065
     Dates: start: 20060510
  3. BENICAR HCT [Concomitant]
     Indication: HYPERTENSION
     Route: 065
     Dates: start: 20070510

REACTIONS (2)
  - HYPERGLYCAEMIA [None]
  - RENAL FAILURE CHRONIC [None]
